FAERS Safety Report 17967271 (Version 1)
Quarter: 2020Q2

REPORT INFORMATION
  Report Type: Spontaneous
  Country: US (occurrence: US)
  Receive Date: 20200630
  Receipt Date: 20200630
  Transmission Date: 20200714
  Serious: Yes (Hospitalization)
  Sender: FDA-Public Use
  Company Number: None

PATIENT
  Sex: Male
  Weight: 85.1 kg

DRUGS (5)
  1. DEXAMETHASONE. [Concomitant]
     Active Substance: DEXAMETHASONE
  2. VINCRISTINE SULFATE. [Concomitant]
     Active Substance: VINCRISTINE SULFATE
  3. CYTARABINE (63878) [Suspect]
     Active Substance: CYTARABINE
  4. ONCASPAR [Concomitant]
     Active Substance: PEGASPARGASE
  5. DAUNORUBICIN [Concomitant]
     Active Substance: DAUNORUBICIN

REACTIONS (3)
  - Hypocalcaemia [None]
  - Electrocardiogram QT prolonged [None]
  - Hypercalcaemia [None]

NARRATIVE: CASE EVENT DATE: 20200623
